FAERS Safety Report 15831425 (Version 1)
Quarter: 2019Q1

REPORT INFORMATION
  Report Type: Spontaneous
  Country: US (occurrence: US)
  Receive Date: 20190115
  Receipt Date: 20190115
  Transmission Date: 20190417
  Serious: Yes (Other)
  Sender: FDA-Public Use
  Company Number: None

PATIENT
  Age: 47 Year
  Sex: Female
  Weight: 45.9 kg

DRUGS (2)
  1. MELOXICAM. [Suspect]
     Active Substance: MELOXICAM
     Indication: PERIPHERAL SWELLING
     Dates: start: 20190115, end: 20190115
  2. MELOXICAM. [Suspect]
     Active Substance: MELOXICAM
     Indication: PAIN IN EXTREMITY
     Dates: start: 20190115, end: 20190115

REACTIONS (5)
  - Victim of crime [None]
  - Seizure [None]
  - Eye swelling [None]
  - Drug hypersensitivity [None]
  - Swelling face [None]

NARRATIVE: CASE EVENT DATE: 20190115
